FAERS Safety Report 10201192 (Version 2)
Quarter: 2014Q2

REPORT INFORMATION
  Report Type: Spontaneous
  Country: US (occurrence: US)
  Receive Date: 20140528
  Receipt Date: 20140528
  Transmission Date: 20141212
  Serious: No
  Sender: FDA-Public Use
  Company Number: US-ASTRAZENECA-2014SE26990

PATIENT
  Age: 69 Year
  Sex: Female
  Weight: 72.6 kg

DRUGS (4)
  1. SYMBICORT [Suspect]
     Indication: COUGH
     Dosage: 160/4.5, 2 PUFFS BID
     Route: 055
     Dates: start: 2014
  2. TAMOXIFEN [Suspect]
     Indication: BREAST CANCER FEMALE
     Route: 048
     Dates: start: 201402
  3. ASPIRIN [Concomitant]
     Indication: PROPHYLAXIS
     Dosage: DAILY
  4. CENTRUM SILVER MULTIVITAMIN [Concomitant]

REACTIONS (7)
  - Malaise [Not Recovered/Not Resolved]
  - Respiration abnormal [Not Recovered/Not Resolved]
  - Cough [Not Recovered/Not Resolved]
  - Device misuse [Unknown]
  - Intentional product misuse [Unknown]
  - Incorrect product storage [Unknown]
  - Circumstance or information capable of leading to medication error [Unknown]
